FAERS Safety Report 14658276 (Version 3)
Quarter: 2018Q4

REPORT INFORMATION
  Report Type: Spontaneous
  Country: US (occurrence: US)
  Receive Date: 20180320
  Receipt Date: 20181214
  Transmission Date: 20190204
  Serious: Yes (Other)
  Sender: FDA-Public Use
  Company Number: US-DRREDDYS-USA/USA/18/0096979

PATIENT
  Age: 68 Year
  Sex: Female

DRUGS (1)
  1. ATORVASTATIN [Suspect]
     Active Substance: ATORVASTATIN
     Indication: PRODUCT USED FOR UNKNOWN INDICATION
     Route: 065

REACTIONS (2)
  - Acute hepatic failure [Recovered/Resolved]
  - Autoimmune hepatitis [Recovered/Resolved]
